FAERS Safety Report 6407012-7 (Version None)
Quarter: 2009Q4

REPORT INFORMATION
  Report Type: 
  Country: None (occurrence: None)
  Receive Date: 20091020
  Receipt Date: 20091008
  Transmission Date: 20100525
  Serious: Yes (Hospitalization)
  Sender: FDA-Public Use
  Company Number: PHEH2009US13282

PATIENT
  Sex: Male

DRUGS (2)
  1. EXJADE [Suspect]
     Indication: SICKLE CELL ANAEMIA WITH CRISIS
     Dosage: 500 MG, UNK
  2. EXJADE [Suspect]
     Indication: IRON OVERLOAD

REACTIONS (1)
  - SICKLE CELL ANAEMIA WITH CRISIS [None]
